FAERS Safety Report 18577943 (Version 2)
Quarter: 2020Q4

REPORT INFORMATION
  Report Type: Spontaneous
  Country: US (occurrence: US)
  Receive Date: 20201204
  Receipt Date: 20201212
  Transmission Date: 20210114
  Serious: Yes (Other)
  Sender: FDA-Public Use
  Company Number: US-DRREDDYS-USA/USA/20/0129767

PATIENT
  Age: 46 Year
  Sex: Female

DRUGS (4)
  1. TRASTUZUMAB. [Suspect]
     Active Substance: TRASTUZUMAB
     Indication: INVASIVE LOBULAR BREAST CARCINOMA
     Route: 065
  2. TAMOXIFEN [Suspect]
     Active Substance: TAMOXIFEN
     Indication: INVASIVE LOBULAR BREAST CARCINOMA
     Dosage: PER DAY FOR EVERY 3 WEEKS
     Route: 065
  3. CYCLOPHOSPHAMIDE. [Suspect]
     Active Substance: CYCLOPHOSPHAMIDE
     Indication: INVASIVE LOBULAR BREAST CARCINOMA
     Route: 065
  4. DOXORUBICIN HYDROCHLORIDE LIPOSOME INJECTION 20 MG/10 ML (2 MG/ML) AND [Suspect]
     Active Substance: DOXORUBICIN HYDROCHLORIDE
     Indication: INVASIVE LOBULAR BREAST CARCINOMA

REACTIONS (9)
  - Decreased interest [Unknown]
  - Irritability [Unknown]
  - Insomnia [Unknown]
  - Weight increased [Unknown]
  - Depression [Recovered/Resolved]
  - Suicidal ideation [Unknown]
  - Anxiety [Unknown]
  - Breast pain [Unknown]
  - Tearfulness [Unknown]
